FAERS Safety Report 4466482-4 (Version None)
Quarter: 2004Q3

REPORT INFORMATION
  Report Type: 
  Country: None (occurrence: None)
  Receive Date: 20040930
  Receipt Date: 20040916
  Transmission Date: 20050211
  Serious: Yes (Hospitalization)
  Sender: FDA-Public Use
  Company Number: 20040900402

PATIENT
  Age: 75 Year
  Sex: Female
  Weight: 54.8852 kg

DRUGS (9)
  1. HEP-LOCK [Suspect]
     Indication: PROPHYLAXIS
     Dosage: 3 CC ONCE IV
     Route: 042
     Dates: start: 20040915, end: 20040915
  2. LIPITOR [Concomitant]
  3. SYNTHROID [Concomitant]
  4. AMBIEN [Concomitant]
  5. POTASSIUM [Concomitant]
  6. KYTRIL [Concomitant]
  7. ZITHROMAX [Concomitant]
  8. BACTRIM [Concomitant]
  9. ATENOLOL [Concomitant]

REACTIONS (9)
  - ANGIOPATHY [None]
  - ASTHENIA [None]
  - ATAXIA [None]
  - ATHEROSCLEROSIS [None]
  - BLOOD GLUCOSE INCREASED [None]
  - CAROTID ARTERY STENOSIS [None]
  - EYELID PTOSIS [None]
  - FACIAL PALSY [None]
  - MITRAL VALVE INCOMPETENCE [None]
